FAERS Safety Report 6595327-1 (Version None)
Quarter: 2010Q1

REPORT INFORMATION
  Report Type: 
  Country: None (occurrence: None)
  Receive Date: 20100219
  Receipt Date: 20100219
  Transmission Date: 20100710
  Serious: Yes (Other)
  Sender: FDA-Public Use
  Company Number: None

PATIENT
  Sex: Female
  Weight: 81.6475 kg

DRUGS (4)
  1. PREMPRO [Suspect]
     Indication: MENOPAUSAL SYMPTOMS
     Dosage: 1 PILL ONCE A DAY PO
     Route: 048
     Dates: start: 19970901, end: 20000301
  2. ACTIVELLA [Suspect]
     Indication: DRUG THERAPY
     Dosage: 1 PILL ONCE A DAY PO
     Route: 048
     Dates: start: 20000901, end: 20080310
  3. VAGIFEM [Concomitant]
  4. CLOBETASOL PROPIONATE [Concomitant]

REACTIONS (5)
  - CAUSTIC INJURY [None]
  - LICHEN SCLEROSUS [None]
  - NO THERAPEUTIC RESPONSE [None]
  - VULVOVAGINAL PAIN [None]
  - WEIGHT INCREASED [None]
